FAERS Safety Report 7281069-6 (Version None)
Quarter: 2011Q1

REPORT INFORMATION
  Report Type: 
  Country: None (occurrence: None)
  Receive Date: 20110208
  Receipt Date: 20110128
  Transmission Date: 20110831
  Serious: Yes (Hospitalization)
  Sender: FDA-Public Use
  Company Number: JP-MERCK-1004USA04797

PATIENT
  Age: 68 Year
  Sex: Female
  Weight: 46 kg

DRUGS (6)
  1. THYRADIN-S [Concomitant]
     Route: 048
  2. JANUVIA [Suspect]
     Indication: TYPE 2 DIABETES MELLITUS
     Route: 048
     Dates: start: 20100304
  3. GLYCORAN [Concomitant]
     Indication: TYPE 2 DIABETES MELLITUS
     Dosage: THE MORNING AND EVENING
     Route: 048
     Dates: start: 20090903, end: 20100427
  4. OLMETEC [Concomitant]
     Indication: HYPERTENSION
     Route: 048
     Dates: end: 20100422
  5. GLYBURIDE [Suspect]
     Indication: TYPE 2 DIABETES MELLITUS
     Dosage: THE MORNING AND EVENING
     Route: 048
     Dates: end: 20100428
  6. OLMETEC [Concomitant]
     Route: 048
     Dates: start: 20100423

REACTIONS (2)
  - LOSS OF CONSCIOUSNESS [None]
  - HYPOGLYCAEMIA [None]
